FAERS Safety Report 14837040 (Version 1)
Quarter: 2018Q2

REPORT INFORMATION
  Report Type: Spontaneous
  Country: US (occurrence: US)
  Receive Date: 20180418
  Receipt Date: 20180418
  Transmission Date: 20180711
  Serious: Yes (Life-Threatening, Hospitalization, Disabling, Other)
  Sender: FDA-Public Use
  Company Number: None

PATIENT
  Age: 73 Year
  Sex: Male
  Weight: 60.75 kg

DRUGS (2)
  1. KEYTRUDA [Suspect]
     Active Substance: PEMBROLIZUMAB
     Indication: NON-SMALL CELL LUNG CANCER
     Dosage: ?          OTHER FREQUENCY:EVERY 3 WEEKS;OTHER ROUTE:INTRAVENOUS THROUGH PORT A CATH?
     Route: 042
     Dates: start: 20170609, end: 20180405
  2. KEYTRUDA [Suspect]
     Active Substance: PEMBROLIZUMAB
     Indication: LARGE CELL LUNG CANCER STAGE III
     Dosage: ?          OTHER FREQUENCY:EVERY 3 WEEKS;OTHER ROUTE:INTRAVENOUS THROUGH PORT A CATH?
     Route: 042
     Dates: start: 20170609, end: 20180405

REACTIONS (4)
  - Type 1 diabetes mellitus [None]
  - Asthenia [None]
  - Diabetic ketoacidosis [None]
  - Vomiting [None]

NARRATIVE: CASE EVENT DATE: 20180406
